FAERS Safety Report 15173395 (Version 2)
Quarter: 2018Q3

REPORT INFORMATION
  Report Type: Report from Study
  Country: BR (occurrence: BR)
  Receive Date: 20180720
  Receipt Date: 20180724
  Transmission Date: 20181010
  Serious: Yes (Hospitalization)
  Sender: FDA-Public Use
  Company Number: BR-UCBSA-2017039901

PATIENT
  Age: 71 Year
  Sex: Female
  Weight: 63 kg

DRUGS (5)
  1. PROLOPA [Concomitant]
     Active Substance: BENSERAZIDE\LEVODOPA
     Indication: PRODUCT USED FOR UNKNOWN INDICATION
     Dosage: 1 TABLET IN THE MORNING, 1/2 TABLET AFTER 4 HOURS AND 1/2 TABLET AFTER 4 HOURS, 3X/DAY (TID)
  2. LEPONEX [Concomitant]
     Active Substance: CLOZAPINE
     Indication: ANTIDEPRESSANT THERAPY
     Dosage: 25MG IN THE MORNING AND 100MG AT NIGHT
     Route: 048
     Dates: start: 2016
  3. LEXAPRO [Concomitant]
     Active Substance: ESCITALOPRAM OXALATE
     Indication: ANTIDEPRESSANT THERAPY
     Dosage: UNK, ONCE DAILY (QD)
     Route: 048
     Dates: start: 2016
  4. PROLOPA HBS [Concomitant]
     Active Substance: BENSERAZIDE\LEVODOPA
     Indication: PARKINSON^S DISEASE
     Dosage: UNK, ONCE DAILY (QD)
     Dates: start: 201803
  5. ROTIGOTINE [Suspect]
     Active Substance: ROTIGOTINE
     Indication: PARKINSON^S DISEASE
     Dosage: BUYING ROTIGOTINE 4 MG AND WAS CUTTING ON HALF
     Route: 062
     Dates: start: 201706, end: 201802

REACTIONS (6)
  - Decreased appetite [Recovered/Resolved]
  - Intentional product misuse [Unknown]
  - Toxicity to various agents [Recovered/Resolved]
  - Amnesia [Recovered/Resolved]
  - Urinary tract infection [Recovered/Resolved]
  - Confusional state [Recovered/Resolved]

NARRATIVE: CASE EVENT DATE: 201706
